FAERS Safety Report 10609755 (Version 1)
Quarter: 2014Q4

REPORT INFORMATION
  Report Type: Spontaneous
  Country: GB (occurrence: None)
  Receive Date: 20141124
  Receipt Date: 20141124
  Transmission Date: 20150529
  Serious: Yes (Hospitalization)
  Sender: FDA-Public Use
  Company Number: GB2014K4940SPO

PATIENT
  Age: 36 Year
  Sex: Male

DRUGS (11)
  1. CORYDALIS YANHUSUO RHIZOME [Suspect]
     Active Substance: HERBALS
     Indication: PAIN
     Route: 048
     Dates: start: 20140801, end: 20140902
  2. RADIX SCROPHULARIAE [Suspect]
     Active Substance: HERBALS
     Indication: PAIN
     Route: 048
     Dates: start: 20140801, end: 20140831
  3. ETORICOXIB (ETORICOXIB) [Suspect]
     Active Substance: ETORICOXIB
     Indication: BACK PAIN
     Route: 048
     Dates: start: 20090902
  4. LANSOPRAZOLE GENERIC (LANSOPRAZOLE) UNKNOWN [Suspect]
     Active Substance: LANSOPRAZOLE
     Route: 048
     Dates: start: 20090902
  5. RADIX ANGELICAE [Suspect]
     Active Substance: HERBALS
     Indication: PAIN
     Route: 048
     Dates: start: 20140801, end: 20140831
  6. RETINERVUS LUFFAE FRUCTUS [Suspect]
     Active Substance: HERBALS
     Indication: PAIN
     Route: 048
     Dates: start: 20140801, end: 20140831
  7. FLUOXETINE (FLUOXETINE ) [Concomitant]
  8. DICLOFENAC [Suspect]
     Active Substance: DICLOFENAC
     Indication: BACK PAIN
     Route: 048
     Dates: start: 20140905, end: 20140926
  9. RADIX CODONOPSIS [Suspect]
     Active Substance: HERBALS
     Indication: PAIN
     Route: 048
     Dates: start: 20140801, end: 20140831
  10. FLOS CARTHAMI [Suspect]
     Active Substance: SAFFLOWER
     Indication: PAIN
     Route: 048
     Dates: start: 20140801, end: 20140831
  11. GAVISCON (ALGINIC ACID HYDROXIDE, ALUMINIUM HYDROXIDE GEL, ALUMINIUM HYDROXIDE MIXTURE,CALCIUM CARBONATE, CALCIUM CARBONATE CARBONATE X, DRIED ALUMINUM HYDROXIDE, MAXI [Concomitant]

REACTIONS (6)
  - Liver disorder [None]
  - Aspartate aminotransferase increased [None]
  - Blood alkaline phosphatase increased [None]
  - Abdominal pain [None]
  - Ankylosing spondylitis [None]
  - Blood bilirubin increased [None]
